FAERS Safety Report 20533811 (Version 2)
Quarter: 2022Q1

REPORT INFORMATION
  Report Type: Report from Study
  Country: NL (occurrence: NL)
  Receive Date: 20220301
  Receipt Date: 20220311
  Transmission Date: 20220423
  Serious: Yes (Hospitalization, Other)
  Sender: FDA-Public Use
  Company Number: NL-BRISTOL-MYERS SQUIBB COMPANY-BMS-2022-026213

PATIENT
  Age: 66 Year
  Sex: Female
  Weight: 87 kg

DRUGS (7)
  1. INVESTIGATIONAL PRODUCT [Suspect]
     Active Substance: INVESTIGATIONAL PRODUCT
     Indication: Small cell lung cancer
     Dosage: 420 MILLIGRAM
     Route: 065
     Dates: start: 20211201
  2. NIVOLUMAB [Suspect]
     Active Substance: NIVOLUMAB
     Indication: Small cell lung cancer
     Dosage: 360 MILLIGRAM
     Route: 042
     Dates: start: 20211201
  3. CARBOPLATIN [Suspect]
     Active Substance: CARBOPLATIN
     Indication: Small cell lung cancer
     Dosage: 700 MILLIGRAM
     Route: 065
     Dates: start: 20211201
  4. ETOPOSIDE [Suspect]
     Active Substance: ETOPOSIDE
     Indication: Small cell lung cancer
     Dosage: 200 MILLIGRAM
     Route: 065
     Dates: start: 20211201
  5. NIFEDIPINE [Concomitant]
     Active Substance: NIFEDIPINE
     Indication: Product used for unknown indication
     Dosage: 30 MILLIGRAM, QD
     Route: 048
     Dates: start: 20211023
  6. THYRAX [LEVOTHYROXINE] [Concomitant]
     Indication: Product used for unknown indication
     Dosage: 50 MICROGRAM, QD
     Route: 055
     Dates: start: 20220202
  7. INFLUENZA VIRUS VACCINE [Concomitant]
     Active Substance: INFLUENZA VIRUS VACCINE
     Indication: Product used for unknown indication
     Dosage: UNK
     Route: 065
     Dates: start: 20211113

REACTIONS (2)
  - Rectal haemorrhage [Unknown]
  - Pancytopenia [Recovering/Resolving]

NARRATIVE: CASE EVENT DATE: 20220217
